FAERS Safety Report 11239462 (Version 1)
Quarter: 2015Q3

REPORT INFORMATION
  Report Type: Spontaneous
  Country: US (occurrence: US)
  Receive Date: 20150706
  Receipt Date: 20150706
  Transmission Date: 20151125
  Serious: Yes (Life-Threatening)
  Sender: FDA-Public Use
  Company Number: US-009507513-1506USA006276

PATIENT
  Age: 63 Year
  Sex: Female
  Weight: 75.5 kg

DRUGS (8)
  1. DIFLUCAN [Concomitant]
     Active Substance: FLUCONAZOLE
  2. DAPTOMYCIN. [Suspect]
     Active Substance: DAPTOMYCIN
     Indication: FUNGAEMIA
     Dosage: 500 MG, UNK
     Route: 042
     Dates: start: 20081117, end: 20081117
  3. ALBUTEROL. [Concomitant]
     Active Substance: ALBUTEROL
  4. ZOSYN [Concomitant]
     Active Substance: PIPERACILLIN SODIUM\TAZOBACTAM SODIUM
  5. FENTANYL. [Concomitant]
     Active Substance: FENTANYL
  6. VANCOMYCIN [Concomitant]
     Active Substance: VANCOMYCIN
  7. CASPOFUNGIN ACETATE [Concomitant]
     Active Substance: CASPOFUNGIN ACETATE
  8. DAPTOMYCIN. [Suspect]
     Active Substance: DAPTOMYCIN
     Dosage: 6.7 MG/KG, UNK
     Route: 042
     Dates: start: 20081117, end: 20081117

REACTIONS (3)
  - Rash [Unknown]
  - Bronchospasm [Unknown]
  - Pyrexia [Unknown]

NARRATIVE: CASE EVENT DATE: 20081117
